FAERS Safety Report 8607206 (Version 2)
Quarter: 2013Q4

REPORT INFORMATION
  Report Type: Spontaneous
  Country: US (occurrence: US)
  Receive Date: 20120611
  Receipt Date: 20131016
  Transmission Date: 20140711
  Serious: No
  Sender: FDA-Public Use
  Company Number: US-ASTRAZENECA-2012SE36281

PATIENT
  Age: 59 Year
  Sex: Female
  Weight: 63.5 kg

DRUGS (7)
  1. NEXIUM [Suspect]
     Dosage: ONE TABLET EVERY DAY
     Route: 048
  2. TRADJENTA [Concomitant]
  3. NEFAZODONE [Concomitant]
  4. CLOPIDOGREL [Concomitant]
  5. AMLODIPINE [Concomitant]
  6. VITAMIN D2 [Concomitant]
     Dosage: 1.25 MG 22ND OF EVERY MONTH
  7. ANTACID [Concomitant]
     Dosage: THREE TIMES A DAY

REACTIONS (7)
  - Lower limb fracture [Unknown]
  - Diabetes mellitus [Unknown]
  - Fall [Unknown]
  - Depression [Unknown]
  - Osteoporosis [Unknown]
  - Spinal fracture [Unknown]
  - Multiple fractures [Unknown]
